FAERS Safety Report 7555390-8 (Version None)
Quarter: 2011Q2

REPORT INFORMATION
  Report Type: 
  Country: None (occurrence: None)
  Receive Date: 20110617
  Receipt Date: 20110608
  Transmission Date: 20111010
  Serious: Yes (Hospitalization)
  Sender: FDA-Public Use
  Company Number: IT-ASTRAZENECA-2011SE35255

PATIENT
  Age: 26702 Day
  Sex: Female

DRUGS (9)
  1. LASIX [Suspect]
     Indication: HYPERTENSION
     Route: 048
     Dates: start: 20110101, end: 20110322
  2. MONOKET [Suspect]
     Indication: HYPERTENSION
     Route: 048
     Dates: start: 20090101, end: 20110322
  3. TICLOPIDINE HCL [Concomitant]
  4. CITALOPRAM HYDROBROMIDE [Concomitant]
  5. ATENOLOL [Concomitant]
  6. OMEPRAZOLE [Suspect]
     Indication: GASTRITIS PROPHYLAXIS
     Route: 048
     Dates: start: 20100707, end: 20110322
  7. EUTIROX [Concomitant]
  8. GARDENALE [Concomitant]
  9. DEURSIL [Concomitant]

REACTIONS (1)
  - HYPOKALAEMIA [None]
